FAERS Safety Report 5393808-X (Version None)
Quarter: 2007Q3

REPORT INFORMATION
  Report Type: 
  Country: None (occurrence: None)
  Receive Date: 20070723
  Receipt Date: 20070717
  Transmission Date: 20080115
  Serious: Yes (Death, Other)
  Sender: FDA-Public Use
  Company Number: AU-AVENTIS-200716530GDDC

PATIENT
  Age: 65 Year
  Sex: Male

DRUGS (5)
  1. ARAVA [Suspect]
     Indication: RHEUMATOID ARTHRITIS
     Route: 048
     Dates: start: 20050118, end: 20070107
  2. LANTUS [Suspect]
     Route: 058
     Dates: start: 20070201, end: 20070525
  3. AUTOPEN INSULIN INJECTION PEN [Suspect]
     Dosage: DOSE: UNK
  4. ACTONEL [Suspect]
     Indication: OSTEOPOROSIS
     Route: 048
     Dates: start: 20030226, end: 20070107
  5. PREDNISOLONE [Concomitant]
     Dosage: DOSE: UNK

REACTIONS (1)
  - GASTRIC ULCER PERFORATION [None]
